FAERS Safety Report 4274087-3 (Version None)
Quarter: 2004Q1

REPORT INFORMATION
  Report Type: 
  Country: None (occurrence: None)
  Receive Date: 20040120
  Receipt Date: 20040116
  Transmission Date: 20041129
  Serious: Yes (Hospitalization)
  Sender: FDA-Public Use
  Company Number: US-GLAXOSMITHKLINE-A0493502A

PATIENT
  Age: 51 Year
  Sex: Female

DRUGS (2)
  1. MELPHALAN [Suspect]
     Indication: MULTIPLE MYELOMA
     Route: 042
     Dates: start: 20031124
  2. THALIDOMIDE [Suspect]
     Indication: MULTIPLE MYELOMA
     Route: 048
     Dates: start: 20030531, end: 20030605

REACTIONS (8)
  - BLOOD THYROID STIMULATING HORMONE INCREASED [None]
  - BRADYCARDIA [None]
  - DIARRHOEA [None]
  - FEBRILE NEUTROPENIA [None]
  - HYPOXIA [None]
  - MUCOSAL INFLAMMATION [None]
  - OESOPHAGITIS [None]
  - PNEUMONIA [None]
